FAERS Safety Report 5354774-6 (Version None)
Quarter: 2007Q2

REPORT INFORMATION
  Report Type: 
  Country: None (occurrence: None)
  Receive Date: 20070611
  Receipt Date: 20070527
  Transmission Date: 20071010
  Serious: Yes (Hospitalization)
  Sender: FDA-Public Use
  Company Number: 2005EU002652

PATIENT
  Age: 49 Year
  Sex: Female

DRUGS (14)
  1. FK506 (TACROLIMUS CAPSULES) CAPSULE [Suspect]
     Indication: LIVER TRANSPLANT
     Dosage: 2 MG, BID; ORAL
     Route: 048
     Dates: start: 20051006
  2. MYCOPHENOLATE MOFETIL [Suspect]
     Indication: LIVER TRANSPLANT
     Dosage: 1000 MG, BID, IV NOS, 1000 MG BID; ORAL
     Route: 042
     Dates: start: 20051001, end: 20051006
  3. MYCOPHENOLATE MOFETIL [Suspect]
     Indication: LIVER TRANSPLANT
     Dosage: 1000 MG, BID, IV NOS, 1000 MG BID; ORAL
     Route: 042
     Dates: start: 20051007
  4. DACLIZUMAB (DACLIZUMAB) [Suspect]
     Indication: LIVER TRANSPLANT
     Dosage: 111.8 MG, UID/QD; IV NOS
     Route: 042
     Dates: start: 20051001, end: 20051008
  5. METHYLPREDNISOLONE [Suspect]
     Indication: LIVER TRANSPLANT
     Dosage: 20 MG, BID;
     Dates: start: 20051001
  6. AMPHOTERICIN B [Concomitant]
  7. CEFOTAXIME SODIUM [Concomitant]
  8. TOBRAMYCIN [Concomitant]
  9. POLYMYXIN (POLYMYXIN B) [Concomitant]
  10. RANITIDINE [Concomitant]
  11. MAGNESIUM SULFATE [Concomitant]
  12. ENOXAPARIN SODIUM [Concomitant]
  13. SALBUTAMOL [Concomitant]
  14. KALIUM CHLORATUM (POTASSIUM CHLORIDE, CHLORIDE) [Concomitant]

REACTIONS (5)
  - CONDITION AGGRAVATED [None]
  - CONGENITAL CYSTIC KIDNEY DISEASE [None]
  - DIALYSIS [None]
  - POST PROCEDURAL COMPLICATION [None]
  - RENAL FAILURE [None]
